FAERS Safety Report 4883814-3 (Version None)
Quarter: 2006Q1

REPORT INFORMATION
  Report Type: 
  Country: None (occurrence: None)
  Receive Date: 20060117
  Receipt Date: 20060117
  Transmission Date: 20060701
  Serious: Yes (Other)
  Sender: FDA-Public Use
  Company Number: None

PATIENT
  Sex: Female

DRUGS (7)
  1. NEVANAC [Suspect]
     Indication: PAIN MANAGEMENT
     Dosage: ONE DROP RIGHT EYE SINGLE DOSE OPHTHALMIC
     Route: 047
     Dates: start: 20051202, end: 20051202
  2. NEVANAC [Suspect]
     Indication: PAIN MANAGEMENT
     Dosage: ONE DROP LEFT EYE SINGLE DOSE OPHTHALMIC
     Route: 047
     Dates: start: 20051202, end: 20051202
  3. ALCOHOL [Concomitant]
  4. MMC 0.02% [Concomitant]
  5. ZYMAR [Concomitant]
  6. PRED FORTE [Concomitant]
  7. ALCAINE [Concomitant]

REACTIONS (4)
  - CORNEAL OPACITY [None]
  - IMPAIRED HEALING [None]
  - POST PROCEDURAL COMPLICATION [None]
  - VISUAL ACUITY REDUCED [None]
